FAERS Safety Report 18323852 (Version 1)
Quarter: 2020Q3

REPORT INFORMATION
  Report Type: Spontaneous
  Country: DE (occurrence: DE)
  Receive Date: 20200928
  Receipt Date: 20200928
  Transmission Date: 20201103
  Serious: Yes (Hospitalization)
  Sender: FDA-Public Use
  Company Number: DE-JNJFOC-20200931669

PATIENT
  Age: 83 Year
  Sex: Female

DRUGS (4)
  1. MACITENTAN [Suspect]
     Active Substance: MACITENTAN
     Indication: PULMONARY ARTERIAL HYPERTENSION
     Route: 048
  2. RIOCIGUAT. [Concomitant]
     Active Substance: RIOCIGUAT
  3. SPIRONOLACTONE. [Concomitant]
     Active Substance: SPIRONOLACTONE
     Route: 048
  4. TOREM                              /01036501/ [Concomitant]
     Active Substance: TORSEMIDE
     Route: 048

REACTIONS (3)
  - Hypertension [Unknown]
  - Sleep apnoea syndrome [Unknown]
  - Dyspnoea [Unknown]
